FAERS Safety Report 20425173 (Version 1)
Quarter: 2022Q1

REPORT INFORMATION
  Report Type: Report from Study
  Country: US (occurrence: US)
  Receive Date: 20220204
  Receipt Date: 20220204
  Transmission Date: 20220424
  Serious: No
  Sender: FDA-Public Use
  Company Number: US-EXELIXIS-CABO-21037057

PATIENT
  Sex: Male

DRUGS (5)
  1. CABOMETYX [Suspect]
     Active Substance: CABOZANTINIB S-MALATE
     Indication: Renal cancer
     Dosage: 60 MG, QD
     Route: 048
  2. GLIPIZIDE [Concomitant]
     Active Substance: GLIPIZIDE
  3. CALCITRIOL [Concomitant]
     Active Substance: CALCITRIOL
  4. ALLOPURINOL [Concomitant]
     Active Substance: ALLOPURINOL
  5. ATROPINE\DIPHENOXYLATE [Concomitant]
     Active Substance: ATROPINE\DIPHENOXYLATE

REACTIONS (2)
  - Product dose omission issue [Unknown]
  - Malignant neoplasm progression [Unknown]
